FAERS Safety Report 5169537-4 (Version None)
Quarter: 2006Q4

REPORT INFORMATION
  Report Type: 
  Country: None (occurrence: None)
  Receive Date: 20061204
  Receipt Date: 20061121
  Transmission Date: 20070319
  Serious: Yes (Hospitalization)
  Sender: FDA-Public Use
  Company Number: TPA2006A02089

PATIENT
  Age: 82 Year
  Sex: Male
  Weight: 81.1939 kg

DRUGS (5)
  1. ACTOS [Suspect]
     Indication: DIABETES MELLITUS NON-INSULIN-DEPENDENT
     Dosage: 30 MG, 1 IN 1 D, PER ORAL
     Route: 048
     Dates: start: 19990101, end: 20061104
  2. INSULIN GLARGINE [Concomitant]
  3. NIACIN [Concomitant]
  4. VITAMIN B COMPLEX (PYRIDOXINE HYDROCHLORIDE, THIAMINE HYDROCHLORIDE, R [Concomitant]
  5. ZETIA [Concomitant]

REACTIONS (7)
  - DIALYSIS [None]
  - DYSPNOEA [None]
  - EJECTION FRACTION DECREASED [None]
  - GLOMERULOSCLEROSIS [None]
  - GLYCOSYLATED HAEMOGLOBIN INCREASED [None]
  - RALES [None]
  - WEIGHT INCREASED [None]
